FAERS Safety Report 9277095 (Version 1)
Quarter: 2013Q2

REPORT INFORMATION
  Report Type: Spontaneous
  Country: US (occurrence: US)
  Receive Date: 20130507
  Receipt Date: 20130507
  Transmission Date: 20140414
  Serious: Yes (Other)
  Sender: FDA-Public Use
  Company Number: US-ELI_LILLY_AND_COMPANY-US201304008887

PATIENT
  Sex: Male

DRUGS (1)
  1. HUMALOG LISPRO [Suspect]
     Indication: TYPE 1 DIABETES MELLITUS
     Dosage: 25 U, QD

REACTIONS (6)
  - Blood glucose increased [Unknown]
  - Cardiac disorder [Unknown]
  - Sluggishness [Unknown]
  - Muscle spasms [Unknown]
  - Dry mouth [Unknown]
  - Drug dose omission [Unknown]
